FAERS Safety Report 8192327-5 (Version None)
Quarter: 2012Q1

REPORT INFORMATION
  Report Type: 
  Country: None (occurrence: None)
  Receive Date: 20120307
  Receipt Date: 20120227
  Transmission Date: 20120608
  Serious: Yes (Other)
  Sender: FDA-Public Use
  Company Number: US-ASTRAZENECA-2010SE48879

PATIENT
  Age: 57 Year
  Sex: Female

DRUGS (2)
  1. PREDNISONE [Concomitant]
  2. NEXIUM [Suspect]
     Route: 048

REACTIONS (9)
  - PAIN [None]
  - ROAD TRAFFIC ACCIDENT [None]
  - DRUG DOSE OMISSION [None]
  - PNEUMONIA PRIMARY ATYPICAL [None]
  - MALAISE [None]
  - ABDOMINAL DISCOMFORT [None]
  - RIB FRACTURE [None]
  - OESOPHAGEAL PAIN [None]
  - OESOPHAGEAL DISORDER [None]
